FAERS Safety Report 10222364 (Version 1)
Quarter: 2014Q1

REPORT INFORMATION
  Report Type: Spontaneous
  Country: US (occurrence: None)
  Receive Date: 20140306
  Receipt Date: 20140306
  Transmission Date: 20141002
  Serious: Yes (Other)
  Sender: FDA-Public Use
  Company Number: 163-21880-13050250

PATIENT
  Age: 71 Year
  Sex: Male

DRUGS (13)
  1. REVLIMID (LENALIDOMIEDE) (25 MILLIGRAM, CAPSULES) [Suspect]
     Indication: PLASMA CELL MYELOMA
     Dosage: 25 MG, 14 IN 21 D, PO
     Route: 048
     Dates: start: 20130218, end: 20130310
  2. VELCADE (BORTEZOMIB) (UNKNOWN) [Suspect]
     Indication: PRODUCT USED FOR UNKNOWN INDICATION
  3. COUMADIN (WARFARIN SODIUM) [Concomitant]
  4. METOPROLOL (METOPROLOL) [Concomitant]
  5. GABAPENTIN (GABAPENTIN) [Concomitant]
  6. B-12 (CYANOCOBALAMIN) [Concomitant]
  7. ZOMETA (ZOLEDRONIC ACID) [Suspect]
  8. LORATADINE (LORATADINE) (LORATADINE) [Concomitant]
  9. NEXIUM (ESOMERRAZOLE) [Concomitant]
  10. VICODIN (VICODIN) [Concomitant]
  11. FLUOXETINE (FLUOXETINE) [Concomitant]
  12. FERROUS SULFATE (FERROUS SULFATE) [Concomitant]
  13. BACLOFEN (BACLOFEN) [Concomitant]

REACTIONS (2)
  - Anaemia [None]
  - Fatigue [None]
